FAERS Safety Report 5178597-6 (Version None)
Quarter: 2006Q4

REPORT INFORMATION
  Report Type: 
  Country: None (occurrence: None)
  Receive Date: 20061208
  Receipt Date: 20061122
  Transmission Date: 20070319
  Serious: Yes (Other)
  Sender: FDA-Public Use
  Company Number: FR-2006-036737

PATIENT
  Age: 51 Year
  Sex: Female

DRUGS (2)
  1. FLUDARA [Suspect]
     Indication: CHRONIC LYMPHOCYTIC LEUKAEMIA
     Dosage: 70 MG/D, OTHER, INTRAVENOUS
     Route: 042
     Dates: start: 20030601, end: 20031101
  2. ENDOXAN [Concomitant]

REACTIONS (3)
  - AUTOIMMUNE DISORDER [None]
  - MUSCULOSKELETAL PAIN [None]
  - SICCA SYNDROME [None]
